FAERS Safety Report 23658635 (Version 1)
Quarter: 2024Q1

REPORT INFORMATION
  Report Type: Spontaneous
  Country: IT (occurrence: IT)
  Receive Date: 20240321
  Receipt Date: 20240321
  Transmission Date: 20240409
  Serious: Yes (Life-Threatening, Other)
  Sender: FDA-Public Use
  Company Number: None

PATIENT
  Age: 73 Year
  Sex: Female

DRUGS (2)
  1. KEYTRUDA [Suspect]
     Active Substance: PEMBROLIZUMAB
     Dosage: SC. 30/11/23
     Route: 042
     Dates: start: 20230313
  2. INLYTA [Concomitant]
     Active Substance: AXITINIB
     Route: 048
     Dates: start: 20220329

REACTIONS (3)
  - Atrial fibrillation [Recovered/Resolved]
  - Pericarditis [Recovered/Resolved]
  - Cholelithiasis [Recovered/Resolved]

NARRATIVE: CASE EVENT DATE: 20230313
